FAERS Safety Report 9646919 (Version 1)
Quarter: 2013Q4

REPORT INFORMATION
  Report Type: Spontaneous
  Country: US (occurrence: US)
  Receive Date: 20131027
  Receipt Date: 20131027
  Transmission Date: 20140711
  Serious: Yes (Other)
  Sender: FDA-Public Use
  Company Number: US-NAPPMUNDI-USA-2013-0101918

PATIENT
  Age: 20 Year
  Sex: Female

DRUGS (3)
  1. OXYCONTIN (NDA 22-272) [Suspect]
     Indication: DRUG ABUSE
     Dosage: UNKNOWN
  2. MARIJUANA [Suspect]
     Indication: DRUG ABUSE
     Dosage: UNKNOWN
  3. METHAMPHETAMINE [Suspect]
     Indication: DRUG ABUSE
     Dosage: UNKNOWN

REACTIONS (4)
  - Substance abuse [Unknown]
  - Slow speech [Unknown]
  - Impaired driving ability [Unknown]
  - Dysarthria [Unknown]
